FAERS Safety Report 11439476 (Version 1)
Quarter: 2015Q3

REPORT INFORMATION
  Report Type: Spontaneous
  Country: US (occurrence: US)
  Receive Date: 20150901
  Receipt Date: 20150901
  Transmission Date: 20151125
  Serious: Yes (Other)
  Sender: FDA-Public Use
  Company Number: US-ROCHE-1101695

PATIENT
  Age: 25 Year
  Sex: Female

DRUGS (4)
  1. PEGASYS [Suspect]
     Active Substance: PEGINTERFERON ALFA-2A
     Indication: CHRONIC HEPATITIS C
     Route: 058
     Dates: start: 20120711
  2. XANAX [Concomitant]
     Active Substance: ALPRAZOLAM
  3. INCIVEK [Suspect]
     Active Substance: TELAPREVIR
     Indication: CHRONIC HEPATITIS C
     Route: 065
     Dates: start: 20120711
  4. RIBAVIRIN (NON-ROCHE/NON-COMPARATOR) [Suspect]
     Active Substance: RIBAVIRIN
     Indication: CHRONIC HEPATITIS C
     Route: 065
     Dates: start: 20120711

REACTIONS (8)
  - Ear pain [Not Recovered/Not Resolved]
  - Sputum discoloured [Unknown]
  - Pyrexia [Not Recovered/Not Resolved]
  - Productive cough [Unknown]
  - Seizure [Unknown]
  - Dyspepsia [Unknown]
  - Oropharyngeal pain [Not Recovered/Not Resolved]
  - Blood potassium decreased [Unknown]

NARRATIVE: CASE EVENT DATE: 20120812
